FAERS Safety Report 8624025-5 (Version None)
Quarter: 2012Q3

REPORT INFORMATION
  Report Type: 
  Country: None (occurrence: None)
  Receive Date: 20120827
  Receipt Date: 20120820
  Transmission Date: 20120928
  Serious: Yes (Hospitalization)
  Sender: FDA-Public Use
  Company Number: FR-UCBSA-064036

PATIENT
  Sex: Male

DRUGS (12)
  1. FOLIC ACID [Concomitant]
     Indication: ANAEMIA
     Dosage: 2 UNITS DAILY
     Route: 048
     Dates: start: 20120531
  2. ACETAMINOPHEN [Concomitant]
  3. KEPPRA [Suspect]
     Indication: EPILEPSY
     Dosage: STRENGTH: 500MG
     Route: 048
     Dates: start: 20090101, end: 20110601
  4. FERROUS SULFATE TAB [Concomitant]
     Indication: ANAEMIA
     Dosage: 2 UNITS DAILY
     Route: 048
     Dates: start: 20120531
  5. RAMIPRIL [Concomitant]
  6. KEPPRA [Suspect]
     Route: 048
     Dates: start: 20110601, end: 20120602
  7. ZOMIG [Concomitant]
  8. VASTAREL [Concomitant]
  9. PERMIXON [Concomitant]
  10. NEXIUM [Concomitant]
  11. VASOBRAL [Concomitant]
  12. NAFTIDROFURYL [Concomitant]

REACTIONS (3)
  - PANCYTOPENIA [None]
  - MOTOR DYSFUNCTION [None]
  - GRAND MAL CONVULSION [None]
